FAERS Safety Report 4982182-6 (Version None)
Quarter: 2006Q2

REPORT INFORMATION
  Report Type: 
  Country: None (occurrence: None)
  Receive Date: 20060419
  Receipt Date: 20060327
  Transmission Date: 20061013
  Serious: Yes (Other)
  Sender: FDA-Public Use
  Company Number: US200603006533

PATIENT
  Age: 62 Year
  Sex: Female

DRUGS (2)
  1. HUMULIN N [Suspect]
     Indication: DIABETES MELLITUS INSULIN-DEPENDENT
     Dosage: 2/D
  2. HUMALOG PEN [Suspect]
     Indication: DIABETES MELLITUS INSULIN-DEPENDENT

REACTIONS (12)
  - BLOOD GLUCOSE FLUCTUATION [None]
  - DEVICE FAILURE [None]
  - HYPERHIDROSIS [None]
  - INCORRECT DOSE ADMINISTERED [None]
  - LOSS OF CONSCIOUSNESS [None]
  - MYALGIA [None]
  - OSTEOARTHRITIS [None]
  - OSTEOPOROSIS [None]
  - PHARMACEUTICAL PRODUCT COMPLAINT [None]
  - RHEUMATOID ARTHRITIS [None]
  - URINARY INCONTINENCE [None]
  - WRONG TECHNIQUE IN DRUG USAGE PROCESS [None]
